FAERS Safety Report 7074061-8 (Version None)
Quarter: 2010Q4

REPORT INFORMATION
  Report Type: 
  Country: None (occurrence: None)
  Receive Date: 20101029
  Receipt Date: 20101022
  Transmission Date: 20110411
  Serious: Yes (Other)
  Sender: FDA-Public Use
  Company Number: US-BAYER-201032934NA

PATIENT
  Age: 83 Year
  Sex: Male

DRUGS (2)
  1. NEXAVAR [Suspect]
     Indication: HEPATIC NEOPLASM MALIGNANT
     Dosage: TOTAL DAILY DOSE: 800 MG  UNIT DOSE: 200 MG
     Route: 048
  2. IRON SLOFE [Concomitant]

REACTIONS (6)
  - GRANULOCYTOPENIA [None]
  - LEUKOPENIA [None]
  - LYMPHOPENIA [None]
  - MICROCYTIC ANAEMIA [None]
  - PANCREATITIS [None]
  - THROMBOCYTOPENIA [None]
